FAERS Safety Report 6019180-X (Version None)
Quarter: 2008Q4

REPORT INFORMATION
  Report Type: 
  Country: None (occurrence: None)
  Receive Date: 20081224
  Receipt Date: 20080619
  Transmission Date: 20090506
  Serious: Yes (Other)
  Sender: FDA-Public Use
  Company Number: JP-PFIZER INC-2008074851

PATIENT

DRUGS (5)
  1. MIGLITOL [Suspect]
     Indication: DIABETES MELLITUS
     Route: 048
     Dates: start: 20080221, end: 20080327
  2. AMARYL [Concomitant]
     Dosage: 3 MG, UNK
     Route: 048
  3. ASPIRIN [Concomitant]
     Dosage: 100 MG, UNK
     Route: 048
  4. BLOPRESS [Concomitant]
     Dosage: 8 MG, UNK
     Route: 048
  5. GASTER [Concomitant]
     Dosage: 20 MG, UNK
     Route: 048

REACTIONS (1)
  - LIVER DISORDER [None]
